FAERS Safety Report 4704942-9 (Version None)
Quarter: 2005Q3

REPORT INFORMATION
  Report Type: 
  Country: None (occurrence: None)
  Receive Date: 20050701
  Receipt Date: 20050620
  Transmission Date: 20060218
  Serious: Yes (Hospitalization)
  Sender: FDA-Public Use
  Company Number: US-BRISTOL-MYERS SQUIBB COMPANY-13009782

PATIENT
  Age: 42 Year
  Sex: Male
  Weight: 68 kg

DRUGS (4)
  1. ZERIT [Suspect]
     Indication: HIV INFECTION
     Dates: start: 19980101, end: 20030101
  2. LAMIVUDINE [Concomitant]
  3. CRIXIVAN [Concomitant]
  4. SAQUINAVIR [Concomitant]

REACTIONS (2)
  - ATROPHY [None]
  - NEPHROLITHIASIS [None]
